FAERS Safety Report 21639650 (Version 1)
Quarter: 2022Q4

REPORT INFORMATION
  Report Type: Report from Study
  Country: RO (occurrence: None)
  Receive Date: 20221124
  Receipt Date: 20221124
  Transmission Date: 20230113
  Serious: Yes (Death)
  Sender: FDA-Public Use
  Company Number: 2022A385676

PATIENT
  Sex: Male

DRUGS (2)
  1. TAGRISSO [Suspect]
     Active Substance: OSIMERTINIB
     Indication: Bronchial carcinoma
     Route: 048
     Dates: start: 202206, end: 20221117
  2. TAGRISSO [Suspect]
     Active Substance: OSIMERTINIB
     Indication: Metastases to liver
     Route: 048
     Dates: start: 202206, end: 20221117

REACTIONS (1)
  - Death [Fatal]

NARRATIVE: CASE EVENT DATE: 20221117
